FAERS Safety Report 18572018 (Version 2)
Quarter: 2020Q4

REPORT INFORMATION
  Report Type: Spontaneous
  Country: GB (occurrence: GB)
  Receive Date: 20201202
  Receipt Date: 20201215
  Transmission Date: 20210114
  Serious: Yes (Death, Other)
  Sender: FDA-Public Use
  Company Number: GB-MYLANLABS-2020M1099468

PATIENT
  Age: 53 Year
  Sex: Male

DRUGS (8)
  1. SENNA                              /00142201/ [Concomitant]
     Active Substance: SENNA LEAF
     Indication: CONSTIPATION
     Dosage: 7.5 MILLIGRAM
     Route: 048
     Dates: start: 20180712
  2. CLOZARIL [Suspect]
     Active Substance: CLOZAPINE
     Dosage: 200 MILLIGRAM
     Dates: end: 20201120
  3. LORAZEPAM. [Concomitant]
     Active Substance: LORAZEPAM
     Indication: ANXIETY
     Dosage: 1 MILLIGRAM, PRN
     Route: 048
     Dates: start: 20180712
  4. THIAMINE. [Concomitant]
     Active Substance: THIAMINE
     Indication: ALCOHOL USE DISORDER
     Dosage: 100 MILLIGRAM, BID
     Route: 048
     Dates: start: 20180712
  5. CLOZARIL [Suspect]
     Active Substance: CLOZAPINE
     Indication: SCHIZOPHRENIA
     Dosage: 350 MILLIGRAM, QD
     Route: 048
     Dates: start: 20080709
  6. PARACETAMOL [Concomitant]
     Active Substance: ACETAMINOPHEN
     Indication: PAIN
     Dosage: 500 MILLIGRAM, 2 TABS NIGHT TIME
     Route: 048
     Dates: start: 20180712
  7. GAVISCON                           /00237601/ [Concomitant]
     Active Substance: ALUMINUM HYDROXIDE\MAGNESIUM CARBONATE
     Indication: GASTROOESOPHAGEAL REFLUX DISEASE
     Dosage: UNK, 5-10ML, 4 TIMES A DAY
     Route: 048
     Dates: start: 20180712
  8. LANSOPRAZOLE. [Concomitant]
     Active Substance: LANSOPRAZOLE
     Indication: GASTROOESOPHAGEAL REFLUX DISEASE
     Dosage: 30 MILLIGRAM, QD
     Route: 048
     Dates: start: 20180712

REACTIONS (4)
  - Dysphagia [Unknown]
  - General physical health deterioration [Fatal]
  - Weight decreased [Unknown]
  - Pneumonia aspiration [Unknown]
